FAERS Safety Report 8439526-2 (Version None)
Quarter: 2012Q2

REPORT INFORMATION
  Report Type: 
  Country: None (occurrence: None)
  Receive Date: 20120615
  Receipt Date: 20120608
  Transmission Date: 20120825
  Serious: Yes (Other)
  Sender: FDA-Public Use
  Company Number: US-PFIZER INC-2012139987

PATIENT
  Sex: Female

DRUGS (1)
  1. RELPAX [Suspect]
     Dosage: 40 MG, 6X1

REACTIONS (1)
  - PAIN [None]
